FAERS Safety Report 6471372-1 (Version None)
Quarter: 2009Q4

REPORT INFORMATION
  Report Type: 
  Country: None (occurrence: None)
  Receive Date: 20091203
  Receipt Date: 20080227
  Transmission Date: 20100525
  Serious: Yes (Other)
  Sender: FDA-Public Use
  Company Number: DE-ELI_LILLY_AND_COMPANY-DE200801006832

PATIENT
  Sex: Female
  Weight: 92.6 kg

DRUGS (12)
  1. EXENATIDE [Suspect]
     Indication: TYPE 2 DIABETES MELLITUS
     Dosage: 5 UG, 2/D
     Route: 065
     Dates: start: 20071114
  2. EXENATIDE [Suspect]
     Dosage: 10 UG, 2/D
     Route: 065
     Dates: start: 20080129, end: 20080130
  3. METFORMIN HCL [Concomitant]
     Indication: TYPE 2 DIABETES MELLITUS
     Dosage: 2000 MG, OTHER, 2000 MG, DAILY (500 MG MORNING, 500 MG AFTERNOON, 1000 MG EVENING)
     Route: 065
     Dates: start: 19990505
  4. GLIMEPIRIDE [Concomitant]
     Indication: DIABETES MELLITUS
     Dosage: 4, (0.5 - 0 - 0)
     Route: 065
     Dates: start: 20060201, end: 20071114
  5. ENALAGAMMA [Concomitant]
     Indication: HYPERTENSION
     Dosage: 5, (0 - 0 - 1)
     Route: 065
     Dates: start: 20031105
  6. ENALAPRIL HCT [Concomitant]
     Indication: HYPERTENSION
     Dosage: 10/25, (1 - 0 - 0)
     Route: 065
     Dates: start: 20031105
  7. METOHEXAL [Concomitant]
     Indication: HYPERTENSION
     Dosage: 95, (0.5 - 0 - 0)
     Route: 065
     Dates: start: 20060504
  8. ASPIRIN [Concomitant]
     Indication: CARDIAC DISORDER
     Dosage: 100, (0 - 1 - 0)
     Route: 065
     Dates: start: 20060504
  9. SIMVASTATIN [Concomitant]
     Indication: HYPERCHOLESTEROLAEMIA
     Dosage: 40, (0 - 0 - 1)
     Route: 065
     Dates: start: 20060516
  10. TROMCARDIN [Concomitant]
     Indication: DIABETIC NEUROPATHY
     Dosage: UNK, (1 - 1 - 1)
     Route: 065
     Dates: start: 20060529
  11. PENTAERYTHRITOL TETRANITRATE [Concomitant]
     Indication: DIABETIC NEUROPATHY
     Dosage: 50, (1 - 0 - 1)
     Route: 065
     Dates: start: 20060529
  12. PENICILLIN A.L [Concomitant]
     Indication: TONSILLITIS
     Dosage: UNK, UNKNOWN
     Route: 065
     Dates: start: 20071101, end: 20071108

REACTIONS (1)
  - DERMATITIS ALLERGIC [None]
